FAERS Safety Report 4935327-8 (Version None)
Quarter: 2006Q1

REPORT INFORMATION
  Report Type: 
  Country: None (occurrence: None)
  Receive Date: 20060127
  Receipt Date: 20051109
  Transmission Date: 20060701
  Serious: Yes (Other)
  Sender: FDA-Public Use
  Company Number: 2005151746

PATIENT
  Age: 43 Year
  Sex: Female

DRUGS (7)
  1. LYRICA [Suspect]
     Indication: RADICULAR PAIN
     Dosage: 150 MG (75 MG,2 IN 1 D),ORAL
     Route: 048
     Dates: start: 20051031
  2. VICODIN [Concomitant]
  3. ZELNORM [Concomitant]
  4. ACYCLOVIR [Concomitant]
  5. CHONDROITIN/GLUCOSAMINE (CHONDROITIN, GLUCOSAMINE) [Concomitant]
  6. SKELAXIN [Concomitant]
  7. FLEXERIL [Concomitant]

REACTIONS (1)
  - VISUAL DISTURBANCE [None]
